FAERS Safety Report 6208504-6 (Version None)
Quarter: 2009Q2

REPORT INFORMATION
  Report Type: 
  Country: None (occurrence: None)
  Receive Date: 20090522
  Receipt Date: 20090223
  Transmission Date: 20091009
  Serious: No
  Sender: FDA-Public Use
  Company Number: 8043447

PATIENT
  Age: 22 Year
  Sex: Male
  Weight: 90.9 kg

DRUGS (5)
  1. CIMZIA [Suspect]
     Indication: CROHN'S DISEASE
     Dosage: 400 MG 1/2W SC
     Route: 058
     Dates: start: 20080501
  2. CIMZIA [Suspect]
     Indication: CROHN'S DISEASE
     Dosage: 400 MG /M SC
     Route: 058
     Dates: start: 20080909
  3. PENTASA [Concomitant]
  4. . [Concomitant]
  5. . [Concomitant]

REACTIONS (10)
  - ARTHRALGIA [None]
  - ASTHENIA [None]
  - DIARRHOEA [None]
  - DIZZINESS [None]
  - EYE MOVEMENT DISORDER [None]
  - HYPOAESTHESIA FACIAL [None]
  - MUSCLE TWITCHING [None]
  - VISION BLURRED [None]
  - VOMITING [None]
  - WEIGHT DECREASED [None]
